FAERS Safety Report 10406948 (Version 1)
Quarter: 2014Q3

REPORT INFORMATION
  Report Type: Spontaneous
  Country: US (occurrence: None)
  Receive Date: 20140822
  Receipt Date: 20140822
  Transmission Date: 20150326
  Serious: Yes (Death, Congenital Anomaly)
  Sender: FDA-Public Use
  Company Number: None

PATIENT
  Age: 19 Year
  Sex: Female

DRUGS (4)
  1. FERROUS SULFATE [Concomitant]
     Active Substance: FERROUS SULFATE\FERROUS SULFATE, DRIED
  2. PRENATAL VITAMINS [Concomitant]
     Active Substance: VITAMINS
  3. MACRODANTIN [Suspect]
     Active Substance: NITROFURANTOIN
     Indication: KIDNEY INFECTION
     Dosage: TAKE ONE CAPSULE BY MOUTH TWICE DAILY FOR 7 DAYS  BY MOUTH?QTY. 14
     Route: 048
     Dates: start: 20100823, end: 20100826
  4. TYLENOL [Concomitant]
     Active Substance: ACETAMINOPHEN

REACTIONS (5)
  - Exposure during pregnancy [None]
  - Abdominal pain upper [None]
  - Blood urine present [None]
  - Abortion spontaneous [None]
  - Dizziness [None]

NARRATIVE: CASE EVENT DATE: 20100903
